FAERS Safety Report 8424342-8 (Version None)
Quarter: 2012Q2

REPORT INFORMATION
  Report Type: 
  Country: None (occurrence: None)
  Receive Date: 20120608
  Receipt Date: 20110713
  Transmission Date: 20120825
  Serious: No
  Sender: FDA-Public Use
  Company Number: US-ASTRAZENECA-2011SE41966

PATIENT

DRUGS (2)
  1. PULMICORT [Suspect]
     Route: 055
  2. BUDESONIDE [Suspect]
     Route: 055

REACTIONS (1)
  - RESPIRATORY DISORDER [None]
